FAERS Safety Report 16560980 (Version 1)
Quarter: 2019Q3

REPORT INFORMATION
  Report Type: Other
  Country: KR (occurrence: KR)
  Receive Date: 20190711
  Receipt Date: 20190711
  Transmission Date: 20191004
  Serious: Yes (Other)
  Sender: FDA-Public Use
  Company Number: KR-AGG-11-2018-1009

PATIENT
  Age: 41 Year
  Sex: Female

DRUGS (7)
  1. AGGRASTAT [Suspect]
     Active Substance: TIROFIBAN HYDROCHLORIDE
     Indication: ANTIPLATELET THERAPY
     Dosage: LOADING DOSE 0.4 MCG/KG/MIN FOR 30 MINUTES
     Route: 013
  2. ASPIRIN. [Concomitant]
     Active Substance: ASPIRIN
     Dosage: 6 HOURS PRIOR TO TIROFIBAN ADMINISTRATION CESSATION
  3. CLOPIDOGREL [Concomitant]
     Active Substance: CLOPIDOGREL BISULFATE
  4. CLOPIDOGREL [Concomitant]
     Active Substance: CLOPIDOGREL BISULFATE
     Dosage: 6 HOURS PRIOR TO TIROFIBAN ADMINISTRATION CESSATION
  5. HEPARIN [Concomitant]
     Active Substance: HEPARIN SODIUM
     Dosage: 5000 U HEPARIN PER LITER NORMAL SAINE SOLUTION
  6. ASPIRIN. [Concomitant]
     Active Substance: ASPIRIN
  7. AGGRASTAT [Suspect]
     Active Substance: TIROFIBAN HYDROCHLORIDE
     Indication: ANTIPLATELET THERAPY
     Dosage: MAINTENANCE DOSE 25 MCG/KG FOR 23.5 HOURS
     Route: 013

REACTIONS (1)
  - Embolic cerebral infarction [Unknown]

NARRATIVE: CASE EVENT DATE: 20180315
